FAERS Safety Report 5895131-3 (Version None)
Quarter: 2008Q3

REPORT INFORMATION
  Report Type: 
  Country: None (occurrence: None)
  Receive Date: 20080924
  Receipt Date: 20080918
  Transmission Date: 20090109
  Serious: Yes (Other)
  Sender: FDA-Public Use
  Company Number: US-WATSON-2008-05179

PATIENT

DRUGS (1)
  1. FENTANYL-75 (WATSON LABORATORIES) [Suspect]
     Indication: PAIN
     Dosage: 1 PATCH, Q 3 DAYS
     Route: 062
     Dates: start: 20080804

REACTIONS (2)
  - SPINAL FUSION SURGERY [None]
  - WITHDRAWAL SYNDROME [None]
